FAERS Safety Report 4417145-2 (Version None)
Quarter: 2004Q2

REPORT INFORMATION
  Report Type: 
  Country: None (occurrence: None)
  Receive Date: 20040629
  Receipt Date: 20030519
  Transmission Date: 20050107
  Serious: Yes (Hospitalization)
  Sender: FDA-Public Use
  Company Number: 2003UW06478

PATIENT
  Age: 72 Year
  Sex: Male

DRUGS (2)
  1. ATACAND [Suspect]
  2. UNSPECIFIED DIABETIC PRESCRIPTIONS [Concomitant]

REACTIONS (1)
  - RENAL FAILURE [None]
